FAERS Safety Report 5135489-6 (Version None)
Quarter: 2006Q4

REPORT INFORMATION
  Report Type: 
  Country: None (occurrence: None)
  Receive Date: 20061024
  Receipt Date: 20061024
  Transmission Date: 20070319
  Serious: Yes (Hospitalization)
  Sender: FDA-Public Use
  Company Number: None

PATIENT
  Age: 76 Year
  Sex: Male
  Weight: 59.4212 kg

DRUGS (9)
  1. GLYBURIDE [Suspect]
     Indication: DIABETES MELLITUS
     Dosage: 2.5 MG Q AM
     Dates: start: 20060501, end: 20060727
  2. FELODIPINE [Concomitant]
  3. GLYBURIDE [Concomitant]
  4. IPRATROPIUM BROMIDE [Concomitant]
  5. LEVALBUTEROL TART [Concomitant]
  6. LISINOPRIL [Concomitant]
  7. MECLIZINE HCL [Concomitant]
  8. MOMETASONE FUROATE [Concomitant]
  9. NON-VA ASPIRIN [Concomitant]

REACTIONS (3)
  - CONFUSIONAL STATE [None]
  - DYSARTHRIA [None]
  - HYPOGLYCAEMIA [None]
